FAERS Safety Report 5639723-5 (Version None)
Quarter: 2008Q1

REPORT INFORMATION
  Report Type: 
  Country: None (occurrence: None)
  Receive Date: 20080131
  Receipt Date: 20071218
  Transmission Date: 20080703
  Serious: Yes (Hospitalization, Disabling)
  Sender: FDA-Public Use
  Company Number: 163-21880-07110368

PATIENT
  Age: 77 Year
  Sex: Female

DRUGS (11)
  1. REVLIMID [Suspect]
     Indication: MULTIPLE MYELOMA
     Dosage: 15 MG, QD X21 DAYS, ORAL; 5 MG, ORAL
     Route: 048
     Dates: start: 20071011
  2. DEXAMETHASONE TAB [Concomitant]
  3. FUROSEMIDE [Concomitant]
  4. ENALAPRIL MALEATE [Concomitant]
  5. ZOCOR [Concomitant]
  6. ARANESP [Concomitant]
  7. GABAPENTIN [Concomitant]
  8. LASIX [Concomitant]
  9. PACKED RED BLOOD CELLS (BLOOD CELLS, PACKED HUMAN) [Concomitant]
  10. COUMADIN [Concomitant]
  11. BUMEX [Concomitant]

REACTIONS (7)
  - ANAEMIA [None]
  - BLOOD CREATININE [None]
  - BLOOD CREATININE INCREASED [None]
  - DEEP VEIN THROMBOSIS [None]
  - MYALGIA [None]
  - OEDEMA PERIPHERAL [None]
  - RENAL FAILURE [None]
